FAERS Safety Report 15879837 (Version 2)
Quarter: 2019Q1

REPORT INFORMATION
  Report Type: Spontaneous
  Country: PT (occurrence: PT)
  Receive Date: 20190128
  Receipt Date: 20190205
  Transmission Date: 20190417
  Serious: Yes (Death, Hospitalization)
  Sender: FDA-Public Use
  Company Number: PT-PFIZER INC-2019035362

PATIENT
  Age: 76 Year
  Sex: Male

DRUGS (15)
  1. RIFAMPICINA [Suspect]
     Active Substance: RIFAMPIN
     Indication: PULMONARY MYCOSIS
     Dosage: UNK
  2. ETHAMBUTOL [Suspect]
     Active Substance: ETHAMBUTOL HYDROCHLORIDE
     Indication: LOWER RESPIRATORY TRACT INFECTION BACTERIAL
  3. AMIKACIN. [Suspect]
     Active Substance: AMIKACIN
     Indication: PULMONARY MYCOSIS
     Dosage: UNK
  4. VORICONAZOLE. [Suspect]
     Active Substance: VORICONAZOLE
     Indication: PULMONARY MYCOSIS
     Dosage: UNK
  5. CLARITROMICINA [Suspect]
     Active Substance: CLARITHROMYCIN
     Indication: LOWER RESPIRATORY TRACT INFECTION BACTERIAL
  6. AMIKACIN. [Suspect]
     Active Substance: AMIKACIN
     Indication: LUNG INFECTION
  7. VORICONAZOLE. [Suspect]
     Active Substance: VORICONAZOLE
     Indication: LUNG INFECTION
  8. CLARITROMICINA [Suspect]
     Active Substance: CLARITHROMYCIN
     Indication: LUNG INFECTION
  9. RIFAMPICINA [Suspect]
     Active Substance: RIFAMPIN
     Indication: LUNG INFECTION
  10. AMIKACIN. [Suspect]
     Active Substance: AMIKACIN
     Indication: LOWER RESPIRATORY TRACT INFECTION BACTERIAL
  11. CLARITROMICINA [Suspect]
     Active Substance: CLARITHROMYCIN
     Indication: PULMONARY MYCOSIS
     Dosage: UNK
  12. ETHAMBUTOL [Suspect]
     Active Substance: ETHAMBUTOL HYDROCHLORIDE
     Indication: PULMONARY MYCOSIS
     Dosage: UNK
  13. VORICONAZOLE. [Suspect]
     Active Substance: VORICONAZOLE
     Indication: LOWER RESPIRATORY TRACT INFECTION BACTERIAL
  14. ETHAMBUTOL [Suspect]
     Active Substance: ETHAMBUTOL HYDROCHLORIDE
     Indication: LUNG INFECTION
  15. RIFAMPICINA [Suspect]
     Active Substance: RIFAMPIN
     Indication: LOWER RESPIRATORY TRACT INFECTION BACTERIAL

REACTIONS (1)
  - Drug ineffective [Fatal]
